FAERS Safety Report 18595471 (Version 1)
Quarter: 2020Q4

REPORT INFORMATION
  Report Type: Report from Study
  Country: US (occurrence: US)
  Receive Date: 20201209
  Receipt Date: 20201209
  Transmission Date: 20210114
  Serious: Yes (Hospitalization, Other)
  Sender: FDA-Public Use
  Company Number: US-CHIESI-2020CHF05874

PATIENT
  Age: 23 Year
  Sex: Male
  Weight: 48 kg

DRUGS (3)
  1. DEFERIPRONE [Suspect]
     Active Substance: DEFERIPRONE
     Indication: HAEMOCHROMATOSIS
     Dosage: UNK
     Route: 048
     Dates: start: 20170505, end: 20201014
  2. DEFERIPRONE [Suspect]
     Active Substance: DEFERIPRONE
     Indication: CONGENITAL DYSERYTHROPOIETIC ANAEMIA
     Dosage: 42 MILLIGRAM/KILOGRAM, BID
     Route: 048
     Dates: start: 20201015, end: 2020
  3. PENICILLIN V POTASSIUM. [Concomitant]
     Active Substance: PENICILLIN V POTASSIUM
     Indication: PRODUCT USED FOR UNKNOWN INDICATION
     Dosage: UNK
     Route: 065

REACTIONS (3)
  - Cardiogenic shock [Recovered/Resolved]
  - Hypotension [Recovering/Resolving]
  - Atrial fibrillation [Recovered/Resolved]

NARRATIVE: CASE EVENT DATE: 202011
